FAERS Safety Report 21257374 (Version 1)
Quarter: 2022Q3

REPORT INFORMATION
  Report Type: Spontaneous
  Country: US (occurrence: US)
  Receive Date: 20220826
  Receipt Date: 20220826
  Transmission Date: 20221027
  Serious: Yes (Other)
  Sender: FDA-Public Use
  Company Number: US-LUPIN PHARMACEUTICALS INC.-2022-10574

PATIENT
  Age: 48 Year
  Sex: Female

DRUGS (5)
  1. HYDROXYCHLOROQUINE [Suspect]
     Active Substance: HYDROXYCHLOROQUINE
     Indication: Granuloma annulare
     Dosage: UNK
     Route: 065
  2. MINOCYCLINE [Suspect]
     Active Substance: MINOCYCLINE HYDROCHLORIDE
     Indication: Granuloma annulare
     Dosage: UNK
     Route: 065
  3. CALCIPOTRIENE [Suspect]
     Active Substance: CALCIPOTRIENE
     Indication: Granuloma annulare
     Dosage: UNK
     Route: 065
  4. BETAMETHASONE DIPROPIONATE [Suspect]
     Active Substance: BETAMETHASONE DIPROPIONATE
     Indication: Granuloma annulare
     Dosage: UNK, (BETAMETHASONE DIPROPIONATE 0.05% LOTION)
     Route: 065
  5. PIMECROLIMUS [Suspect]
     Active Substance: PIMECROLIMUS
     Indication: Granuloma annulare
     Dosage: UNK
     Route: 065

REACTIONS (2)
  - Drug ineffective for unapproved indication [Unknown]
  - Off label use [Unknown]
